FAERS Safety Report 12391771 (Version 1)
Quarter: 2016Q2

REPORT INFORMATION
  Report Type: Spontaneous
  Country: IT (occurrence: IT)
  Receive Date: 20160522
  Receipt Date: 20160522
  Transmission Date: 20160815
  Serious: Yes (Death, Hospitalization)
  Sender: FDA-Public Use
  Company Number: IT-MYLANLABS-2015M1012208

PATIENT

DRUGS (6)
  1. CARBOPLATIN. [Concomitant]
     Active Substance: CARBOPLATIN
     Indication: ENDOMETRIAL ADENOCARCINOMA
     Dosage: 2 CYCLES
     Route: 065
     Dates: end: 201303
  2. BEVACIZUMAB [Concomitant]
     Active Substance: BEVACIZUMAB
     Indication: ENDOMETRIAL ADENOCARCINOMA
     Dosage: 15 MG/KG CYCLES
     Route: 065
     Dates: start: 201303
  3. GEMCITABINE [Concomitant]
     Active Substance: GEMCITABINE\GEMCITABINE HYDROCHLORIDE
     Indication: ENDOMETRIAL ADENOCARCINOMA
     Dosage: 2 CYCLES
     Route: 065
     Dates: end: 201303
  4. INSULIN [Concomitant]
     Active Substance: INSULIN NOS
     Indication: DIABETES MELLITUS MANAGEMENT
  5. METFORMIN [Suspect]
     Active Substance: METFORMIN HYDROCHLORIDE
     Indication: TYPE 2 DIABETES MELLITUS
     Route: 065
     Dates: start: 201303
  6. BEVACIZUMAB [Concomitant]
     Active Substance: BEVACIZUMAB
     Dosage: 7.5 MG/KG CYCLES
     Route: 065
     Dates: start: 201303

REACTIONS (4)
  - Epilepsy [Unknown]
  - Malignant neoplasm progression [Fatal]
  - Jaundice [Unknown]
  - Abdominal discomfort [Unknown]

NARRATIVE: CASE EVENT DATE: 201305
